FAERS Safety Report 6578267-3 (Version None)
Quarter: 2010Q1

REPORT INFORMATION
  Report Type: 
  Country: None (occurrence: None)
  Receive Date: 20100211
  Receipt Date: 20100205
  Transmission Date: 20100710
  Serious: Yes (Life-Threatening, Hospitalization)
  Sender: FDA-Public Use
  Company Number: B0575594A

PATIENT
  Age: 15 Year
  Sex: Female

DRUGS (4)
  1. LAMICTAL [Suspect]
     Indication: EPILEPSY
     Route: 048
     Dates: start: 20090325, end: 20090415
  2. DEPAKENE [Suspect]
     Indication: EPILEPSY
     Route: 048
     Dates: start: 20081221, end: 20090418
  3. NORLEVO [Concomitant]
     Indication: CONTRACEPTION
     Route: 065
     Dates: start: 20090411, end: 20090411
  4. CLOBAZAM [Concomitant]
     Indication: EPILEPSY
     Route: 065

REACTIONS (15)
  - CONJUNCTIVAL HYPERAEMIA [None]
  - DERMATITIS BULLOUS [None]
  - DRUG INTERACTION [None]
  - ERYTHEMA [None]
  - FACE OEDEMA [None]
  - LYMPHADENOPATHY [None]
  - MUCOSAL EROSION [None]
  - NIKOLSKY'S SIGN [None]
  - PRURITUS [None]
  - PYREXIA [None]
  - RASH MACULO-PAPULAR [None]
  - RESPIRATORY TRACT CONGESTION [None]
  - SKIN DISORDER [None]
  - TOXIC EPIDERMAL NECROLYSIS [None]
  - TOXIC SKIN ERUPTION [None]
